FAERS Safety Report 12369989 (Version 1)
Quarter: 2016Q2

REPORT INFORMATION
  Report Type: Spontaneous
  Country: US (occurrence: None)
  Receive Date: 20160513
  Receipt Date: 20160513
  Transmission Date: 20160815
  Serious: Yes (Life-Threatening, Hospitalization, Other)
  Sender: FDA-Public Use
  Company Number: None

PATIENT
  Age: 64 Year
  Sex: Female
  Weight: 81.65 kg

DRUGS (9)
  1. LEVOTHYROXINE SODIUM. [Concomitant]
     Active Substance: LEVOTHYROXINE SODIUM
  2. ONE-A-DAY NOS [Concomitant]
     Active Substance: MINERALS\VITAMINS
  3. ADULT VITAMINS [Concomitant]
  4. VITAFUSION [Concomitant]
  5. SIMVATATIN [Concomitant]
  6. BACTRIM DS [Suspect]
     Active Substance: SULFAMETHOXAZOLE\TRIMETHOPRIM
     Indication: ORAL INFECTION
     Dosage: 160-800 1 TAB TWICE A DAY TWICE A DAY BY MOUTH FOR 7 DAYS
     Route: 048
     Dates: start: 20150909, end: 20150913
  7. VALSARTAN AND HYDROCHLOROTHIAZIDE [Concomitant]
     Active Substance: HYDROCHLOROTHIAZIDE\VALSARTAN
  8. PLATINUM 50+ PLUS [Concomitant]
  9. VASCEPA [Concomitant]
     Active Substance: ICOSAPENT ETHYL

REACTIONS (4)
  - Rectal haemorrhage [None]
  - Pain [None]
  - Abasia [None]
  - Abdominal pain upper [None]

NARRATIVE: CASE EVENT DATE: 20150909
